FAERS Safety Report 7976488-6 (Version None)
Quarter: 2011Q4

REPORT INFORMATION
  Report Type: 
  Country: None (occurrence: None)
  Receive Date: 20111213
  Receipt Date: 20111024
  Transmission Date: 20120403
  Serious: Yes (Hospitalization, Other)
  Sender: FDA-Public Use
  Company Number: US-AMGEN-USASP2011050026

PATIENT
  Age: 10 Year
  Sex: Female
  Weight: 32.6 kg

DRUGS (9)
  1. NAPROXEN [Concomitant]
     Dosage: 250 MG, BID
     Route: 048
     Dates: start: 20101001
  2. ENBREL [Suspect]
     Dosage: UNK
     Dates: end: 20110601
  3. METHOTREXATE [Concomitant]
     Dosage: 15 MG, QWK
     Route: 048
     Dates: start: 20101001, end: 20110610
  4. VITAMIN D [Concomitant]
     Dosage: UNK
  5. ENBREL [Suspect]
     Indication: JUVENILE ARTHRITIS
     Dosage: 12.5 MG, QWK
     Route: 058
     Dates: start: 20110506, end: 20110610
  6. FOLIC ACID [Concomitant]
     Dosage: 1 MG, QD
     Route: 048
     Dates: start: 20101001
  7. CALCIUM [Concomitant]
     Dosage: UNK
  8. VERAMYST [Concomitant]
     Dosage: UNK UNK, QD
  9. ALBUTEROL [Concomitant]
     Dosage: UNK UNK, PRN

REACTIONS (3)
  - OSTEOMYELITIS [None]
  - SINUSITIS [None]
  - EXTRADURAL ABSCESS [None]
